FAERS Safety Report 8609193-3 (Version None)
Quarter: 2012Q3

REPORT INFORMATION
  Report Type: 
  Country: None (occurrence: None)
  Receive Date: 20120821
  Receipt Date: 20120816
  Transmission Date: 20120928
  Serious: Yes (Life-Threatening, Hospitalization)
  Sender: FDA-Public Use
  Company Number: US-CELGENEUS-163-21880-12081891

PATIENT
  Sex: Male
  Weight: 97.61 kg

DRUGS (11)
  1. AZATHIOPRINE SODIUM [Concomitant]
     Route: 065
  2. FEXOFENADINE [Concomitant]
     Route: 065
  3. IBUPROFEN [Concomitant]
     Route: 065
  4. MESALAMINE [Concomitant]
     Route: 065
  5. AMLODIPINE [Concomitant]
     Route: 065
  6. REVLIMID [Suspect]
     Indication: MULTIPLE MYELOMA
     Dosage: 25 MILLIGRAM
     Route: 048
     Dates: start: 20120601
  7. NEURONTIN [Concomitant]
     Route: 065
  8. METHOCARBAMOL [Concomitant]
     Route: 065
  9. NEXIUM [Concomitant]
     Route: 065
  10. HYDROCORTISONE [Concomitant]
     Route: 061
  11. OSTEO BI-FLEX [Concomitant]
     Route: 065

REACTIONS (3)
  - SEPSIS [None]
  - PNEUMONIA [None]
  - RENAL FAILURE [None]
